FAERS Safety Report 9553074 (Version 1)
Quarter: 2013Q3

REPORT INFORMATION
  Report Type: Report from Study
  Country: BR (occurrence: BR)
  Receive Date: 20130925
  Receipt Date: 20130925
  Transmission Date: 20140515
  Serious: Yes (Other)
  Sender: FDA-Public Use
  Company Number: BR-ROCHE-1277379

PATIENT
  Sex: Male
  Weight: 94 kg

DRUGS (2)
  1. INTERFERON ALFA-2A [Suspect]
     Indication: HEPATITIS C
     Route: 065
     Dates: start: 2010, end: 2011
  2. RIBAVIRIN [Suspect]
     Indication: HEPATITIS C
     Route: 065
     Dates: start: 2010, end: 2011

REACTIONS (4)
  - Hepatitis C [Unknown]
  - Fatigue [Unknown]
  - Immune system disorder [Unknown]
  - Glossodynia [Unknown]
